FAERS Safety Report 8031040 (Version 3)
Quarter: 2014Q2

REPORT INFORMATION
  Report Type: Spontaneous
  Country: US (occurrence: US)
  Receive Date: 20110712
  Receipt Date: 20140616
  Transmission Date: 20141212
  Serious: Yes (Hospitalization)
  Sender: FDA-Public Use
  Company Number: US-GLAXOSMITHKLINE-B0732149A

PATIENT
  Sex: Female
  Weight: 57.7 kg

DRUGS (1)
  1. AVANDIA [Suspect]
     Indication: DIABETES MELLITUS
     Dosage: 4MG TWICE PER DAY
     Route: 048
     Dates: start: 200409, end: 2007

REACTIONS (5)
  - Cerebrovascular accident [Not Recovered/Not Resolved]
  - Thrombotic cerebral infarction [Unknown]
  - Neuropathy peripheral [Unknown]
  - Ataxia [Unknown]
  - Dissociative identity disorder [Unknown]
